FAERS Safety Report 14407457 (Version 2)
Quarter: 2018Q3

REPORT INFORMATION
  Report Type: Spontaneous
  Country: CY (occurrence: CY)
  Receive Date: 20180118
  Receipt Date: 20180828
  Transmission Date: 20181010
  Serious: Yes (Hospitalization, Other)
  Sender: FDA-Public Use
  Company Number: PHHY2017CY199351

PATIENT
  Age: 12 Year
  Sex: Female

DRUGS (1)
  1. SOMATROPIN. [Suspect]
     Active Substance: SOMATROPIN
     Indication: BODY HEIGHT BELOW NORMAL
     Dosage: 0.04 MG/KG, QD (0.035 MG/KG, DAILY)
     Route: 065

REACTIONS (2)
  - Off label use [Unknown]
  - Posterior reversible encephalopathy syndrome [Recovered/Resolved]
